FAERS Safety Report 9614537 (Version 1)
Quarter: 2013Q4

REPORT INFORMATION
  Report Type: Spontaneous
  Country: US (occurrence: None)
  Receive Date: 20131009
  Receipt Date: 20131009
  Transmission Date: 20140711
  Serious: No
  Sender: FDA-Public Use
  Company Number: None

PATIENT
  Age: 72 Year
  Sex: Female

DRUGS (1)
  1. HUMIRA 40MG ABBVIE [Suspect]
     Dosage: 40MG  ONCE A WEEK  SUBCUTANEOUS
     Route: 058

REACTIONS (2)
  - Burning sensation [None]
  - Pain [None]
